FAERS Safety Report 23581935 (Version 1)
Quarter: 2024Q1

REPORT INFORMATION
  Report Type: Spontaneous
  Country: CN (occurrence: CN)
  Receive Date: 20240229
  Receipt Date: 20240229
  Transmission Date: 20240409
  Serious: Yes (Other)
  Sender: FDA-Public Use
  Company Number: CN-ORGANON-O2402CHN002785

PATIENT
  Age: 69 Year
  Sex: Female
  Weight: 60 kg

DRUGS (3)
  1. DIPROSPAN [Suspect]
     Active Substance: BETAMETHASONE DIPROPIONATE\BETAMETHASONE SODIUM PHOSPHATE
     Indication: Periarthritis
     Dosage: LOCAL INJECTION, 0.3ML, QW
     Route: 065
     Dates: start: 20240215, end: 20240215
  2. SODIUM CHLORIDE [Concomitant]
     Active Substance: SODIUM CHLORIDE
     Indication: Medication dilution
     Dosage: LOCAL INJECTION, 10ML, QW
     Dates: start: 20240215, end: 20240215
  3. LORNOXICAM [Concomitant]
     Active Substance: LORNOXICAM
     Indication: Periarthritis
     Dosage: LOCAL INJECTION, 8ML, QW
     Dates: start: 20240215, end: 20240215

REACTIONS (4)
  - Insomnia [Recovering/Resolving]
  - Flushing [Recovering/Resolving]
  - Eyelid oedema [Recovering/Resolving]
  - Blood pressure increased [Unknown]

NARRATIVE: CASE EVENT DATE: 20240215
